FAERS Safety Report 8357730-9 (Version None)
Quarter: 2012Q2

REPORT INFORMATION
  Report Type: 
  Country: None (occurrence: None)
  Receive Date: 20120514
  Receipt Date: 20110623
  Transmission Date: 20120825
  Serious: No
  Sender: FDA-Public Use
  Company Number: US-TEVA-2011003293

PATIENT
  Sex: Male
  Weight: 99.88 kg

DRUGS (5)
  1. FLUOXETINE [Concomitant]
     Dates: start: 19910101
  2. CRESTOR [Concomitant]
     Dates: start: 20110401
  3. UROXATRAL [Concomitant]
     Dates: start: 20070101
  4. NUVIGIL [Suspect]
     Indication: SLEEP APNOEA SYNDROME
     Dosage: 150 MILLIGRAM;
     Route: 048
     Dates: start: 20110609, end: 20110610
  5. ASPIRIN [Concomitant]

REACTIONS (3)
  - INSOMNIA [None]
  - FEELING ABNORMAL [None]
  - DEPRESSED MOOD [None]
